FAERS Safety Report 9397919 (Version 2)
Quarter: 2013Q3

REPORT INFORMATION
  Report Type: Spontaneous
  Country: JP (occurrence: None)
  Receive Date: 20130709
  Receipt Date: 20130808
  Transmission Date: 20140515
  Serious: Yes (Life-Threatening, Hospitalization)
  Sender: FDA-Public Use
  Company Number: TCI2013A03868

PATIENT
  Age: 58 Year
  Sex: Female

DRUGS (6)
  1. ACTOS (PIOGLITAZONE HYDROCHLORIDE) [Suspect]
     Indication: TYPE 2 DIABETES MELLITUS
     Route: 048
     Dates: start: 20090715
  2. CO DIO COMBINATION EX (HYDROCHLOROTHIAZIDE, VALSARTAN) [Concomitant]
  3. RASILEZ (ALISKIREN FUMARATE) (ALISKIREN FUMARATE) [Concomitant]
  4. CRESTOR (ROSUVASTATIN CALCIUM) [Concomitant]
  5. BAYASPIRIN (ACETYLSALICYLIC ACID) (ACETYLSALICYLIC ACID) [Concomitant]
  6. EQUA (VILDAGLIPTIN) [Concomitant]

REACTIONS (2)
  - Diabetic nephropathy [None]
  - Blood potassium increased [None]
